FAERS Safety Report 9306917 (Version 1)
Quarter: 2013Q1

REPORT INFORMATION
  Report Type: Spontaneous
  Country: US (occurrence: None)
  Receive Date: 20130215
  Receipt Date: 20130215
  Transmission Date: 20140127
  Serious: Yes (Hospitalization)
  Sender: FDA-Public Use
  Company Number: UTC-028598

PATIENT
  Age: 69 Year
  Sex: Male
  Weight: 141.8 kg

DRUGS (6)
  1. REMODULIN (5 MILLIGRAM/MILLILITERS, INJECTION FOR INFUSION) (TREPROSTINIL SODIUM) [Suspect]
     Indication: PULMONARY ARTERIAL HYPERTENSION
     Dosage: 93.6 UG/KG (0.65 UG/KG, 1 IN 1 MIN), INTRAVENOUS DRIP
     Dates: start: 20100617
  2. REMODULIN (5 MILLIGRAM/MILLILITERS, INJECTION FOR INFUSION) (TREPROSTINIL SODIUM) [Suspect]
     Indication: PULMONARY ARTERIAL HYPERTENSION
     Dosage: 93.6 UG/KG (0.65 UG/KG, 1 IN 1 MIN), INTRAVENOUS DRIP
     Dates: start: 20100617
  3. COUMADIN (WARFARIN SODIUM) [Concomitant]
  4. BUMETANIDE [Concomitant]
  5. SPIRONOLACTONE [Concomitant]
  6. DIGOXIN [Concomitant]

REACTIONS (5)
  - Idiopathic thrombocytopenic purpura [None]
  - Faecal incontinence [None]
  - Lymphoma [None]
  - Hydrocephalus [None]
  - Pleural effusion [None]
